FAERS Safety Report 9836804 (Version 3)
Quarter: 2014Q2

REPORT INFORMATION
  Report Type: Spontaneous
  Country: US (occurrence: US)
  Receive Date: 20140123
  Receipt Date: 20140528
  Transmission Date: 20141212
  Serious: No
  Sender: FDA-Public Use
  Company Number: US-PFIZER INC-2014015303

PATIENT
  Age: 52 Year
  Sex: Female

DRUGS (6)
  1. NORVASC [Suspect]
     Indication: HYPERTENSION
     Dosage: 5 MG, DAILY (QD)
     Route: 048
     Dates: end: 2010
  2. MORPHINE SULFATE [Suspect]
     Dosage: UNK
  3. NORCO [Concomitant]
     Dosage: 10-325 PRN
  4. IBUPROFEN [Concomitant]
     Dosage: UNK
  5. ZANTAC [Concomitant]
     Dosage: UNK
  6. ZOCOR [Concomitant]
     Dosage: UNK

REACTIONS (2)
  - Drug hypersensitivity [Unknown]
  - Dizziness [Recovered/Resolved]
